FAERS Safety Report 9275540 (Version 1)
Quarter: 2013Q2

REPORT INFORMATION
  Report Type: Spontaneous
  Country: US (occurrence: US)
  Receive Date: 20130507
  Receipt Date: 20130507
  Transmission Date: 20140414
  Serious: No
  Sender: FDA-Public Use
  Company Number: US-PFIZER INC-2013140708

PATIENT
  Age: 39 Year
  Sex: Female
  Weight: 65.76 kg

DRUGS (1)
  1. LYRICA [Suspect]
     Indication: VULVOVAGINAL PAIN
     Dosage: 75 MG, 1X/DAY AT NIGHT
     Dates: start: 20130429, end: 20130501

REACTIONS (6)
  - Dizziness [Not Recovered/Not Resolved]
  - Disorientation [Not Recovered/Not Resolved]
  - Paraesthesia [Not Recovered/Not Resolved]
  - Hypoaesthesia [Not Recovered/Not Resolved]
  - Pruritus [Recovered/Resolved]
  - Off label use [Recovered/Resolved]
